FAERS Safety Report 8859624 (Version 1)
Quarter: 2012Q4

REPORT INFORMATION
  Report Type: Spontaneous
  Country: US (occurrence: None)
  Receive Date: 20121022
  Receipt Date: 20121022
  Transmission Date: 20130627
  Serious: Yes (Hospitalization, Other)
  Sender: FDA-Public Use
  Company Number: HALO20120007

PATIENT

DRUGS (2)
  1. HALOPERIDOL [Suspect]
     Indication: SCHIZOPHRENIA
     Dosage: one dose
     Route: 048
     Dates: start: 2012
  2. ILOPERIDONE [Suspect]
     Indication: SCHIZOPHRENIA
     Dosage: 2 mg, 2 in 1 D, unknown
     Dates: start: 2012

REACTIONS (7)
  - Angioedema [None]
  - Rash erythematous [None]
  - Dyspnoea [None]
  - Speech disorder [None]
  - Oropharyngeal swelling [None]
  - Tachypnoea [None]
  - Drug hypersensitivity [None]
